FAERS Safety Report 10160526 (Version 6)
Quarter: 2015Q2

REPORT INFORMATION
  Report Type: Spontaneous
  Country: US (occurrence: US)
  Receive Date: 20140508
  Receipt Date: 20150422
  Transmission Date: 20150821
  Serious: Yes (Hospitalization)
  Sender: FDA-Public Use
  Company Number: US-BAYER-2014-065527

PATIENT
  Age: 25 Year
  Sex: Female
  Weight: 82 kg

DRUGS (3)
  1. MIRENA [Suspect]
     Active Substance: LEVONORGESTREL
     Indication: CONTRACEPTION
     Dosage: UNK
  2. MIRENA [Suspect]
     Active Substance: LEVONORGESTREL
     Indication: CONTRACEPTION
     Dosage: 20 MCG/24HR, CONT
     Route: 015
     Dates: start: 20111111, end: 201208
  3. MIRENA [Suspect]
     Active Substance: LEVONORGESTREL
     Indication: CONTRACEPTION
     Dosage: 20 MCG/24HR, CONT
     Route: 015
     Dates: start: 20080325, end: 20120712

REACTIONS (11)
  - Abdominal pain [None]
  - Back pain [None]
  - Device dislocation [None]
  - Emotional distress [None]
  - Flank pain [None]
  - Drug ineffective [None]
  - Scar [None]
  - Injury [None]
  - Uterine perforation [None]
  - Device use error [None]
  - Pregnancy with contraceptive device [None]

NARRATIVE: CASE EVENT DATE: 20090316
